FAERS Safety Report 24015268 (Version 5)
Quarter: 2024Q4

REPORT INFORMATION
  Report Type: Report from Study
  Country: US (occurrence: US)
  Receive Date: 20240626
  Receipt Date: 20241128
  Transmission Date: 20250114
  Serious: Yes (Death, Hospitalization, Other)
  Sender: AEGERION
  Company Number: US-AMRYT PHARMACEUTICALS DAC-AEGR007083

PATIENT
  Age: 0 Year
  Sex: Female
  Weight: 4.639 kg

DRUGS (2)
  1. FILSUVEZ [Suspect]
     Active Substance: BIRCH TRITERPENES
     Indication: Epidermolysis bullosa
     Dosage: 10% W/W GEL (23.4 G), APPLY A 1 MM LAYER TO AFFECTED WOUND SURFACE(S) AT EACH DRESSING CHANGE UNTIL
     Dates: start: 20240411
  2. FILSUVEZ [Suspect]
     Active Substance: BIRCH TRITERPENES
     Dosage: 10% W/W GEL (23.4 G), APPLY A 1 MM LAYER TO AFFECTED WOUND SURFACE(S) AT EACH DRESSING CHANGE UNTIL
     Dates: start: 20240411

REACTIONS (8)
  - Death [Fatal]
  - Illness [Not Recovered/Not Resolved]
  - Tracheostomy [Not Recovered/Not Resolved]
  - Wound [Not Recovered/Not Resolved]
  - Hyperhidrosis [Not Recovered/Not Resolved]
  - Pruritus [Not Recovered/Not Resolved]
  - Accidental exposure to product by child [Unknown]
  - Multiple use of single-use product [Unknown]

NARRATIVE: CASE EVENT DATE: 20240606
